FAERS Safety Report 21818551 (Version 1)
Quarter: 2023Q1

REPORT INFORMATION
  Report Type: Spontaneous
  Country: US (occurrence: US)
  Receive Date: 20230104
  Receipt Date: 20230104
  Transmission Date: 20230418
  Serious: Yes (Other)
  Sender: FDA-Public Use
  Company Number: US-NOVEN PHARMACEUTICALS, INC.-2023-NOV-US000001

PATIENT
  Age: 49 Year
  Sex: Male

DRUGS (2)
  1. METHYLPHENIDATE [Suspect]
     Active Substance: METHYLPHENIDATE
     Indication: Affective disorder
     Dosage: UNK, UNKNOWN
     Route: 065
     Dates: start: 2021
  2. METHYLPHENIDATE [Suspect]
     Active Substance: METHYLPHENIDATE
     Indication: Encephalopathy

REACTIONS (1)
  - Autonomic nervous system imbalance [Recovered/Resolved]

NARRATIVE: CASE EVENT DATE: 20210101
